FAERS Safety Report 9104197 (Version 1)
Quarter: 2013Q1

REPORT INFORMATION
  Report Type: Spontaneous
  Country: BR (occurrence: BR)
  Receive Date: 20130219
  Receipt Date: 20130219
  Transmission Date: 20140127
  Serious: Yes (Hospitalization, Other)
  Sender: FDA-Public Use
  Company Number: PHHY2013BR015271

PATIENT
  Sex: Female
  Weight: 80 kg

DRUGS (3)
  1. DIOVAN [Suspect]
     Indication: HYPERTENSION
     Dosage: 2 DF (320 MG) DAILY
     Route: 048
  2. BAMIFIX [Concomitant]
     Dosage: 1 DF (300 MG) DAILY
     Route: 048
  3. OXYGEN [Concomitant]
     Dosage: UNK UKN, Q8H

REACTIONS (2)
  - Cerebrovascular accident [Recovering/Resolving]
  - Akinesia [Recovering/Resolving]
